FAERS Safety Report 8098582-4 (Version None)
Quarter: 2012Q1

REPORT INFORMATION
  Report Type: 
  Country: None (occurrence: None)
  Receive Date: 20120129
  Receipt Date: 20110914
  Transmission Date: 20120608
  Serious: No
  Sender: FDA-Public Use
  Company Number: US-ABBOTT-11P-163-0854986-00

PATIENT
  Sex: Male
  Weight: 97.156 kg

DRUGS (3)
  1. HUMIRA [Suspect]
     Indication: CROHN'S DISEASE
     Dates: start: 20100801, end: 20110826
  2. PRILOSEC [Concomitant]
     Indication: GASTROOESOPHAGEAL REFLUX DISEASE
  3. FLEXERIL [Concomitant]
     Indication: BACK PAIN
     Dates: start: 20110601

REACTIONS (4)
  - BACK PAIN [None]
  - CHILLS [None]
  - FATIGUE [None]
  - SKIN LESION [None]
